FAERS Safety Report 8361950-7 (Version None)
Quarter: 2012Q2

REPORT INFORMATION
  Report Type: 
  Country: None (occurrence: None)
  Receive Date: 20120515
  Receipt Date: 20120511
  Transmission Date: 20120825
  Serious: Yes (Other)
  Sender: FDA-Public Use
  Company Number: GB-ROXANE LABORATORIES, INC.-2012-RO-01223RO

PATIENT
  Age: 76 Year
  Sex: Female

DRUGS (8)
  1. ROPINIROLE [Suspect]
     Indication: RESTLESS LEGS SYNDROME
     Dosage: 2 MG
  2. VITAMIN D [Concomitant]
  3. CALCIUM CARBONATE [Suspect]
     Indication: GOUT
  4. ROPINIROLE [Suspect]
  5. BENELDOPA [Suspect]
     Indication: RESTLESS LEGS SYNDROME
  6. BENELDOPA [Suspect]
  7. NITRAZEPAM [Suspect]
     Indication: INSOMNIA
     Dosage: 5 MG
  8. ALLOPURINOL [Concomitant]
     Indication: GOUT

REACTIONS (1)
  - CONDITION AGGRAVATED [None]
